FAERS Safety Report 16671881 (Version 1)
Quarter: 2019Q3

REPORT INFORMATION
  Report Type: Spontaneous
  Country: US (occurrence: US)
  Receive Date: 20190620
  Receipt Date: 20190620
  Transmission Date: 20191004
  Serious: No
  Sender: FDA-Public Use
  Company Number: None

PATIENT
  Age: 29 Year
  Sex: Male

DRUGS (1)
  1. COSENTYX [Suspect]
     Active Substance: SECUKINUMAB
     Indication: PSORIASIS
     Dates: start: 201706

REACTIONS (5)
  - Condition aggravated [None]
  - Arthralgia [None]
  - Therapy cessation [None]
  - Insurance issue [None]
  - Inflammation [None]

NARRATIVE: CASE EVENT DATE: 20190228
